FAERS Safety Report 12764041 (Version 1)
Quarter: 2016Q3

REPORT INFORMATION
  Report Type: Spontaneous
  Country: US (occurrence: US)
  Receive Date: 20160920
  Receipt Date: 20160920
  Transmission Date: 20161109
  Serious: Yes (Hospitalization)
  Sender: FDA-Public Use
  Company Number: US-TEVA-694498USA

PATIENT
  Age: 27 Year
  Sex: Female

DRUGS (5)
  1. PROCTOZONE [Concomitant]
     Active Substance: HYDROCORTISONE
  2. CLONAZEPAM. [Concomitant]
     Active Substance: CLONAZEPAM
  3. TRINESSA LO [Concomitant]
     Active Substance: ETHINYL ESTRADIOL\NORGESTIMATE
  4. KLONOPIN [Concomitant]
     Active Substance: CLONAZEPAM
  5. COPAXONE [Suspect]
     Active Substance: GLATIRAMER ACETATE
     Indication: MULTIPLE SCLEROSIS
     Route: 058
     Dates: start: 20160506

REACTIONS (2)
  - Hypoaesthesia [Recovered/Resolved]
  - Multiple sclerosis relapse [Recovered/Resolved]

NARRATIVE: CASE EVENT DATE: 20160830
